FAERS Safety Report 6290580-6 (Version None)
Quarter: 2009Q4

REPORT INFORMATION
  Report Type: 
  Country: None (occurrence: None)
  Receive Date: 20090728
  Receipt Date: 20090728
  Transmission Date: 20100525
  Serious: No
  Sender: FDA-Public Use
  Company Number: None

PATIENT
  Age: 56 Year
  Sex: Female

DRUGS (5)
  1. ASPARAGINASE [Suspect]
     Dates: start: 20070415, end: 20070502
  2. BACTRIM [Concomitant]
  3. CEFTRIAXONE [Concomitant]
  4. LEVAQUIN [Concomitant]
  5. ALLOPURINOL [Concomitant]

REACTIONS (13)
  - ASTHENIA [None]
  - CHOLESTASIS [None]
  - DECREASED APPETITE [None]
  - FATIGUE [None]
  - FULL BLOOD COUNT ABNORMAL [None]
  - HEPATIC STEATOSIS [None]
  - HEPATOTOXICITY [None]
  - HYPOCOAGULABLE STATE [None]
  - LEUKAEMIC INFILTRATION HEPATIC [None]
  - NAUSEA [None]
  - RASH [None]
  - SPLENOMEGALY [None]
  - URINARY TRACT INFECTION [None]
